FAERS Safety Report 8565252-5 (Version None)
Quarter: 2012Q3

REPORT INFORMATION
  Report Type: 
  Country: None (occurrence: None)
  Receive Date: 20120803
  Receipt Date: 20120723
  Transmission Date: 20120928
  Serious: Yes (Other)
  Sender: FDA-Public Use
  Company Number: GR-GLAXOSMITHKLINE-B0819732A

PATIENT
  Age: 52 Year
  Sex: Female

DRUGS (1)
  1. LAPATINIB [Suspect]
     Indication: BREAST CANCER METASTATIC
     Route: 065

REACTIONS (3)
  - HEPATOTOXICITY [None]
  - VOMITING [None]
  - INCORRECT DOSE ADMINISTERED [None]
